FAERS Safety Report 4616890-3 (Version None)
Quarter: 2005Q1

REPORT INFORMATION
  Report Type: 
  Country: None (occurrence: None)
  Receive Date: 20050321
  Receipt Date: 20050307
  Transmission Date: 20050727
  Serious: Yes (Hospitalization)
  Sender: FDA-Public Use
  Company Number: 2005042664

PATIENT
  Age: 52 Year
  Sex: Female
  Weight: 71 kg

DRUGS (5)
  1. NEURONTIN [Suspect]
     Indication: POST HERPETIC NEURALGIA
     Dosage: ORAL
     Route: 048
     Dates: start: 20050113, end: 20050118
  2. HEPARIN-FRACTION, SODIUM SALT (HEPARIN-FRACTION, SODIUM SALT) [Suspect]
     Indication: ILL-DEFINED DISORDER
     Dosage: 40 MG (40 MG, 1 IN 1 D), SUBCUTANEOUS
     Route: 058
     Dates: start: 20050112, end: 20050114
  3. HYDROXYZINE HCL [Concomitant]
  4. CLONAZEPAM [Concomitant]
  5. PREDNISONE [Concomitant]

REACTIONS (1)
  - HEPATITIS [None]
